FAERS Safety Report 11526549 (Version 1)
Quarter: 2015Q3

REPORT INFORMATION
  Report Type: Spontaneous
  Country: US (occurrence: US)
  Receive Date: 20150903
  Receipt Date: 20150903
  Transmission Date: 20151125
  Serious: No
  Sender: FDA-Public Use
  Company Number: US-ELI_LILLY_AND_COMPANY-US201311006341

PATIENT
  Sex: Female

DRUGS (1)
  1. CYMBALTA [Suspect]
     Active Substance: DULOXETINE HYDROCHLORIDE
     Indication: FIBROMYALGIA
     Dosage: 60 MG, BID
     Route: 065
     Dates: start: 2003, end: 201310

REACTIONS (6)
  - Drug dose omission [Unknown]
  - Musculoskeletal pain [Unknown]
  - Arthralgia [Unknown]
  - Neck pain [Unknown]
  - Neuralgia [Unknown]
  - Overdose [Unknown]
